FAERS Safety Report 25809761 (Version 1)
Quarter: 2025Q3

REPORT INFORMATION
  Report Type: Report from Study
  Country: US (occurrence: US)
  Receive Date: 20250916
  Receipt Date: 20250916
  Transmission Date: 20251020
  Serious: Yes (Hospitalization, Other)
  Sender: ABBVIE
  Company Number: US-ABBVIE-6458723

PATIENT
  Age: 70 Year
  Sex: Female

DRUGS (1)
  1. RINVOQ [Suspect]
     Active Substance: UPADACITINIB
     Indication: Rheumatoid arthritis
     Route: 048
     Dates: start: 20220105

REACTIONS (8)
  - Staphylococcus test positive [Unknown]
  - Myxoid cyst [Unknown]
  - Pyrexia [Unknown]
  - Dizziness [Unknown]
  - Hypotension [Unknown]
  - Asthenia [Unknown]
  - Joint injury [Unknown]
  - Tendon injury [Unknown]

NARRATIVE: CASE EVENT DATE: 20250101
